FAERS Safety Report 9547966 (Version 1)
Quarter: 2013Q2

REPORT INFORMATION
  Report Type: Spontaneous
  Country: JP (occurrence: None)
  Receive Date: 20130605
  Receipt Date: 20130605
  Transmission Date: 20140414
  Serious: Yes (Other)
  Sender: FDA-Public Use
  Company Number: SYM-2013-04247

PATIENT
  Age: 70 Year
  Sex: Male

DRUGS (1)
  1. VERTEPORFIN [Suspect]
     Indication: POLYPOIDAL CHOROIDAL VASCULOPATHY
     Route: 042

REACTIONS (1)
  - Retinal haemorrhage [None]
